FAERS Safety Report 10300485 (Version 2)
Quarter: 2014Q3

REPORT INFORMATION
  Report Type: Report from Study
  Country: DE (occurrence: DE)
  Receive Date: 20140713
  Receipt Date: 20140713
  Transmission Date: 20150326
  Serious: Yes (Other)
  Sender: FDA-Public Use
  Company Number: PHHY2014DE084144

PATIENT
  Sex: Male
  Weight: 96 kg

DRUGS (5)
  1. ULTIBRO BREEZHALER [Suspect]
     Active Substance: GLYCOPYRRONIUM\INDACATEROL
     Indication: CHRONIC OBSTRUCTIVE PULMONARY DISEASE
     Dosage: 1 DF, QD
     Route: 055
  2. RAMIPRIL. [Concomitant]
     Active Substance: RAMIPRIL
     Dates: end: 201311
  3. SALBUHEXAL [Suspect]
     Active Substance: ALBUTEROL
  4. TABEX//CYTISINE [Concomitant]
  5. GLYCOPYRRONIUM BROMIDE [Suspect]
     Active Substance: GLYCOPYRRONIUM
     Indication: CHRONIC OBSTRUCTIVE PULMONARY DISEASE
     Dosage: 44 UG, QD
     Route: 055
     Dates: start: 20130422, end: 20140605

REACTIONS (1)
  - Weight increased [Recovered/Resolved]
